FAERS Safety Report 25166521 (Version 1)
Quarter: 2025Q2

REPORT INFORMATION
  Report Type: Report from Study
  Country: US (occurrence: US)
  Receive Date: 20250407
  Receipt Date: 20250407
  Transmission Date: 20250716
  Serious: No
  Sender: ACADIA PHARMACEUTICALS
  Company Number: US-ACADIA PHARMACEUTICALS INC.-ACA-2025-PIM-003557

PATIENT
  Sex: Female

DRUGS (14)
  1. NUPLAZID [Suspect]
     Active Substance: PIMAVANSERIN TARTRATE
     Indication: Parkinson^s disease
     Dosage: 34 MILLIGRAM, QD
     Route: 048
     Dates: start: 20241214
  2. ARICEPT [Concomitant]
     Active Substance: DONEPEZIL HYDROCHLORIDE
  3. ASPIRIN [Concomitant]
     Active Substance: ASPIRIN
  4. ATORVASTATIN [Concomitant]
     Active Substance: ATORVASTATIN
  5. CALCIUM [Concomitant]
     Active Substance: CALCIUM
  6. CARBIDOPA [Concomitant]
     Active Substance: CARBIDOPA
  7. FISH OIL [Concomitant]
     Active Substance: FISH OIL
  8. LISINOPRIL [Concomitant]
     Active Substance: LISINOPRIL
  9. MYRBETRIQ [Concomitant]
     Active Substance: MIRABEGRON
  10. NAMENDA [Concomitant]
     Active Substance: MEMANTINE HYDROCHLORIDE
  11. ROPINIROLE [Concomitant]
     Active Substance: ROPINIROLE
  12. VITAMIN C [Concomitant]
     Active Substance: ASCORBIC ACID
  13. VITAMIN D3 [Concomitant]
     Active Substance: CHOLECALCIFEROL
  14. VITAMIN E [Concomitant]
     Active Substance: .ALPHA.-TOCOPHEROL

REACTIONS (3)
  - Tremor [Unknown]
  - Condition aggravated [Unknown]
  - Product dose omission issue [Unknown]
